FAERS Safety Report 4365965-5 (Version None)
Quarter: 2004Q2

REPORT INFORMATION
  Report Type: 
  Country: None (occurrence: None)
  Receive Date: 20040520
  Receipt Date: 20040505
  Transmission Date: 20050107
  Serious: Yes (Hospitalization)
  Sender: FDA-Public Use
  Company Number: S04-AUS-01383-01

PATIENT
  Age: 43 Year
  Sex: Male

DRUGS (3)
  1. LEXAPRO [Suspect]
     Indication: STRESS SYMPTOMS
     Dosage: 10 MG QD PO
     Route: 048
     Dates: start: 20031001, end: 20030101
  2. LEXAPRO [Suspect]
     Indication: STRESS SYMPTOMS
     Dosage: 20 MG QD PO
     Route: 048
     Dates: start: 20030101
  3. LEXAPRO [Suspect]
     Indication: STRESS SYMPTOMS
     Dosage: 20 MG QD PO
     Route: 048
     Dates: start: 20030101

REACTIONS (6)
  - LEGAL PROBLEM [None]
  - MANIA [None]
  - PARANOIA [None]
  - PERSECUTORY DELUSION [None]
  - PSYCHOTIC DISORDER [None]
  - SELF-MEDICATION [None]
